FAERS Safety Report 9434973 (Version 2)
Quarter: 2013Q4

REPORT INFORMATION
  Report Type: Report from Study
  Country: JP (occurrence: JP)
  Receive Date: 20130801
  Receipt Date: 20131008
  Transmission Date: 20140711
  Serious: Yes (Hospitalization)
  Sender: FDA-Public Use
  Company Number: JP-AMGEN-JPNCT2013053878

PATIENT
  Age: 87 Year
  Sex: Female
  Weight: 40 kg

DRUGS (18)
  1. DARBEPOETIN ALFA [Suspect]
     Indication: NEPHROGENIC ANAEMIA
     Dosage: 60 MUG, Q4WK
     Route: 058
     Dates: start: 20110618
  2. LASIX [Suspect]
     Indication: GLOMERULONEPHRITIS CHRONIC
     Dosage: 20 MG, QD
     Route: 048
     Dates: end: 20120807
  3. NORVASC [Concomitant]
     Dosage: UNK
     Route: 048
  4. BAYASPIRIN [Concomitant]
     Dosage: UNK
     Route: 048
  5. METHYCOBAL [Concomitant]
     Dosage: UNK
     Route: 048
  6. ARGAMATE [Concomitant]
     Dosage: UNK
     Route: 048
  7. MERISLON [Concomitant]
     Dosage: UNK
     Route: 048
  8. MAGMITT [Concomitant]
     Dosage: UNK
     Route: 048
  9. MYSLEE [Concomitant]
     Dosage: UNK
     Route: 048
  10. LAC-B [Concomitant]
     Dosage: UNK
     Route: 048
  11. SAXIZON [Concomitant]
     Dosage: UNK
     Route: 042
  12. KASHIWADOL [Concomitant]
     Dosage: UNK
     Route: 042
  13. SALICYLIC ACID EMOLLIENT [Concomitant]
     Dosage: UNK
     Route: 061
  14. KERATINAMIN [Concomitant]
     Dosage: UNK
     Route: 061
  15. INTEBAN [Concomitant]
     Dosage: UNK
     Route: 061
  16. NEUROTROPIN [Concomitant]
     Dosage: UNK
     Route: 065
  17. DECADRON [Concomitant]
     Dosage: UNK
     Route: 065
  18. ZESTAK [Concomitant]
     Dosage: UNK
     Route: 061

REACTIONS (2)
  - Dehydration [Recovered/Resolved]
  - Gastroenteritis [Recovered/Resolved]
